FAERS Safety Report 6667077-4 (Version None)
Quarter: 2010Q2

REPORT INFORMATION
  Report Type: 
  Country: None (occurrence: None)
  Receive Date: 20100405
  Receipt Date: 20100325
  Transmission Date: 20101027
  Serious: Yes (Other)
  Sender: FDA-Public Use
  Company Number: US-ASTRAZENECA-2010SE13283

PATIENT
  Age: 50 Year
  Sex: Female

DRUGS (6)
  1. SYMBICORT [Suspect]
     Indication: COUGH
     Route: 055
     Dates: start: 20100201
  2. SPIRIVA [Suspect]
     Indication: COUGH
     Route: 055
     Dates: start: 20100201
  3. PRAVACHOL [Concomitant]
  4. AMBIEN [Concomitant]
  5. PROVENTIL [Concomitant]
  6. ADVAIR DISKUS 100/50 [Concomitant]

REACTIONS (1)
  - LUNG NEOPLASM MALIGNANT [None]
